FAERS Safety Report 6565001-6 (Version None)
Quarter: 2010Q1

REPORT INFORMATION
  Report Type: 
  Country: None (occurrence: None)
  Receive Date: 20100201
  Receipt Date: 20100120
  Transmission Date: 20100710
  Serious: Yes (Hospitalization)
  Sender: FDA-Public Use
  Company Number: GB-PFIZER INC-2010007524

PATIENT
  Age: 65 Year
  Sex: Female

DRUGS (3)
  1. SUTENT [Suspect]
     Route: 048
  2. DEXAMETHASONE [Concomitant]
  3. LANSOPRAZOLE [Concomitant]

REACTIONS (2)
  - BRAIN OEDEMA [None]
  - GRAND MAL CONVULSION [None]
